FAERS Safety Report 6501222-6 (Version None)
Quarter: 2009Q4

REPORT INFORMATION
  Report Type: 
  Country: None (occurrence: None)
  Receive Date: 20091216
  Receipt Date: 20091008
  Transmission Date: 20100525
  Serious: No
  Sender: FDA-Public Use
  Company Number: A0810903A

PATIENT
  Age: 61 Year
  Sex: Male

DRUGS (1)
  1. COMMIT [Suspect]

REACTIONS (1)
  - MIGRAINE [None]
